FAERS Safety Report 7123773-6 (Version None)
Quarter: 2010Q4

REPORT INFORMATION
  Report Type: 
  Country: None (occurrence: None)
  Receive Date: 20101125
  Receipt Date: 20101115
  Transmission Date: 20110411
  Serious: Yes (Hospitalization)
  Sender: FDA-Public Use
  Company Number: PHHY2010CA33922

PATIENT
  Sex: Female

DRUGS (9)
  1. EXJADE [Suspect]
     Indication: THALASSAEMIA
     Dosage: 500 MG, QD
     Route: 048
     Dates: start: 20100504
  2. EXJADE [Suspect]
     Dosage: 500 MG, QD
     Route: 048
     Dates: start: 20100601
  3. EXJADE [Suspect]
     Dosage: UNK
     Dates: start: 20100701
  4. EXJADE [Suspect]
     Dosage: UNK
     Dates: start: 20100713, end: 20100828
  5. FOLIC ACID [Concomitant]
     Dosage: 5 MG, QD
     Route: 048
  6. PREDNISONE [Concomitant]
     Dosage: UNK, ONCE DAILY
     Route: 048
  7. MULTI-VITAMINS [Concomitant]
     Dosage: UNK, ONCE A DAY
  8. ALLOPURINOL [Concomitant]
     Dosage: 300 MG, QD
     Route: 048
  9. FOSAVANCE [Concomitant]
     Dosage: UNK

REACTIONS (8)
  - ARTHRALGIA [None]
  - DIZZINESS [None]
  - FALL [None]
  - JOINT SWELLING [None]
  - OEDEMA PERIPHERAL [None]
  - RASH [None]
  - SKIN CHAPPED [None]
  - SPINAL FRACTURE [None]
